FAERS Safety Report 5790363-7 (Version None)
Quarter: 2008Q2

REPORT INFORMATION
  Report Type: 
  Country: None (occurrence: None)
  Receive Date: 20080626
  Receipt Date: 20080425
  Transmission Date: 20081010
  Serious: No
  Sender: FDA-Public Use
  Company Number: A0724821A

PATIENT
  Age: 55 Year
  Sex: Female

DRUGS (3)
  1. ALLI [Suspect]
     Dates: start: 20080414, end: 20080423
  2. CENTRUM SILVER [Concomitant]
  3. CHOLESTEROL REDUCING AGENT [Concomitant]

REACTIONS (3)
  - DEFAECATION URGENCY [None]
  - DIARRHOEA [None]
  - DIZZINESS [None]
